FAERS Safety Report 5507488-3 (Version None)
Quarter: 2007Q4

REPORT INFORMATION
  Report Type: 
  Country: None (occurrence: None)
  Receive Date: 20071106
  Receipt Date: 20071026
  Transmission Date: 20080405
  Serious: Yes (Hospitalization, Other)
  Sender: FDA-Public Use
  Company Number: DE-JNJFOC-20070802475

PATIENT
  Sex: Male
  Weight: 100 kg

DRUGS (5)
  1. TOPAMAX [Suspect]
     Route: 048
  2. TOPAMAX [Suspect]
     Indication: EPILEPSY
     Route: 048
  3. TEGRETOL [Suspect]
     Route: 048
  4. TEGRETOL [Suspect]
     Indication: EPILEPSY
     Route: 048
  5. CITALOPRAM HYDROBROMIDE [Suspect]
     Indication: SUICIDE ATTEMPT
     Route: 048

REACTIONS (10)
  - BRADYCARDIA [None]
  - BRAIN OEDEMA [None]
  - EPILEPSY [None]
  - HYPOKALAEMIA [None]
  - MULTIPLE DRUG OVERDOSE INTENTIONAL [None]
  - RESTLESSNESS [None]
  - SOMNOLENCE [None]
  - SUICIDE ATTEMPT [None]
  - TRANSIENT PSYCHOSIS [None]
  - TREMOR [None]
